FAERS Safety Report 4493543-6 (Version None)
Quarter: 2004Q4

REPORT INFORMATION
  Report Type: 
  Country: None (occurrence: None)
  Receive Date: 20041102
  Receipt Date: 20041026
  Transmission Date: 20050328
  Serious: Yes (Hospitalization)
  Sender: FDA-Public Use
  Company Number: 2004241202US

PATIENT
  Sex: Female

DRUGS (2)
  1. CALAN [Suspect]
  2. TELITHROMYCIN(TELITHROMYCIN) [Suspect]

REACTIONS (2)
  - BLOOD PRESSURE DECREASED [None]
  - DRUG INTERACTION [None]
